FAERS Safety Report 9838109 (Version 1)
Quarter: 2014Q1

REPORT INFORMATION
  Report Type: Spontaneous
  Country: KR (occurrence: KR)
  Receive Date: 20140123
  Receipt Date: 20140123
  Transmission Date: 20141002
  Serious: Yes (Other)
  Sender: FDA-Public Use
  Company Number: KR-PFIZER INC-2014018393

PATIENT
  Sex: Female

DRUGS (4)
  1. RISPERIDONE [Suspect]
     Indication: SCHIZOPHRENIA
     Dosage: UNK
  2. RISPERIDONE [Suspect]
     Indication: AGITATION
     Dosage: 1.5 MG, DAILY
     Route: 048
  3. QUETIAPINE FUMARATE [Suspect]
     Indication: SCHIZOPHRENIA
     Dosage: UNK
  4. HALOPERIDOL [Suspect]
     Indication: SCHIZOPHRENIA
     Dosage: UNK

REACTIONS (3)
  - Ataxia [Recovering/Resolving]
  - Tremor [Recovering/Resolving]
  - Drug ineffective [Unknown]
